FAERS Safety Report 5948434-8 (Version None)
Quarter: 2008Q4

REPORT INFORMATION
  Report Type: 
  Country: None (occurrence: None)
  Receive Date: 20081110
  Receipt Date: 20081110
  Transmission Date: 20090506
  Serious: Yes (Other)
  Sender: FDA-Public Use
  Company Number: None

PATIENT
  Age: 22 Month
  Sex: Female
  Weight: 11.3399 kg

DRUGS (2)
  1. PROPOFOL [Suspect]
     Indication: BRAIN NEOPLASM
     Dates: start: 20080729, end: 20080826
  2. PROPOFOL [Suspect]
     Indication: CONVULSION
     Dates: start: 20080729, end: 20080826

REACTIONS (10)
  - ABNORMAL BEHAVIOUR [None]
  - AGGRESSION [None]
  - ANGER [None]
  - FATIGUE [None]
  - HEAD INJURY [None]
  - HYPERSOMNIA [None]
  - INJURY [None]
  - INTENTIONAL SELF-INJURY [None]
  - PAIN [None]
  - SCREAMING [None]
